FAERS Safety Report 8214088-3 (Version None)
Quarter: 2012Q1

REPORT INFORMATION
  Report Type: 
  Country: None (occurrence: None)
  Receive Date: 20120314
  Receipt Date: 20120314
  Transmission Date: 20120608
  Serious: Yes (Hospitalization)
  Sender: FDA-Public Use
  Company Number: None

PATIENT
  Age: 19 Year
  Sex: Male
  Weight: 60.69 kg

DRUGS (5)
  1. CISPLATIN [Suspect]
  2. DECADRON [Concomitant]
  3. EMEND [Concomitant]
  4. ZOFRAN [Concomitant]
  5. ETOPOSIDE [Suspect]

REACTIONS (5)
  - CONTUSION [None]
  - DISCOMFORT [None]
  - INFUSION SITE EXTRAVASATION [None]
  - INFUSION SITE SWELLING [None]
  - PAIN [None]
